FAERS Safety Report 9150486 (Version 1)
Quarter: 2013Q1

REPORT INFORMATION
  Report Type: Spontaneous
  Country: FR (occurrence: FR)
  Receive Date: 20130308
  Receipt Date: 20130308
  Transmission Date: 20140127
  Serious: Yes (Other)
  Sender: FDA-Public Use
  Company Number: FR-ROCHE-1199766

PATIENT
  Age: 82 Year
  Sex: Male

DRUGS (8)
  1. LUCENTIS [Suspect]
     Indication: AGE-RELATED MACULAR DEGENERATION
     Dosage: 10 MG/ML
     Route: 050
     Dates: start: 20110202
  2. LUCENTIS [Suspect]
     Route: 050
     Dates: start: 20110609
  3. EXOCINE [Suspect]
     Indication: PRODUCT USED FOR UNKNOWN INDICATION
     Route: 065
     Dates: start: 20110201, end: 20110206
  4. LACRIGEL [Suspect]
     Indication: PRODUCT USED FOR UNKNOWN INDICATION
     Route: 065
     Dates: start: 20110202, end: 20110206
  5. IOPIDINE [Suspect]
     Indication: PRODUCT USED FOR UNKNOWN INDICATION
     Route: 065
     Dates: start: 20110202, end: 20110220
  6. XATRAL [Concomitant]
     Route: 065
     Dates: start: 2006
  7. PREVISCAN [Concomitant]
     Route: 065
     Dates: start: 2004
  8. PERMIXON [Concomitant]
     Route: 065
     Dates: start: 2006

REACTIONS (1)
  - Retinal pigment epithelial tear [Not Recovered/Not Resolved]
